FAERS Safety Report 6300280-1 (Version None)
Quarter: 2009Q3

REPORT INFORMATION
  Report Type: 
  Country: None (occurrence: None)
  Receive Date: 20090806
  Receipt Date: 20090731
  Transmission Date: 20100115
  Serious: Yes (Hospitalization)
  Sender: FDA-Public Use
  Company Number: FR-MERCK-0908FRA00003

PATIENT
  Age: 75 Year
  Sex: Female

DRUGS (3)
  1. FOSAMAX PLUS D [Suspect]
     Indication: OSTEOPOROSIS
     Route: 048
     Dates: start: 20090715, end: 20090722
  2. FOSAMAX PLUS D [Concomitant]
     Route: 048
     Dates: start: 20080301, end: 20090701
  3. RABEPRAZOLE SODIUM [Concomitant]
     Indication: GASTRITIS
     Route: 048

REACTIONS (1)
  - ATRIAL FIBRILLATION [None]
